FAERS Safety Report 7283988-3 (Version None)
Quarter: 2011Q1

REPORT INFORMATION
  Report Type: 
  Country: None (occurrence: None)
  Receive Date: 20110131
  Receipt Date: 20110113
  Transmission Date: 20110831
  Serious: Yes (Hospitalization)
  Sender: FDA-Public Use
  Company Number: 023912

PATIENT
  Sex: Male
  Weight: 63.05 kg

DRUGS (6)
  1. CIMZIA [Suspect]
     Indication: CROHN'S DISEASE
     Dosage: (SUBCUTANEOUS) (400 MG 1X/28 DAYS SUBCUTANEOUS) (400 MG 1X/28 DAYS SUBCUTANEOUS)
     Route: 058
     Dates: start: 20100101
  2. CIMZIA [Suspect]
     Indication: CROHN'S DISEASE
     Dosage: (SUBCUTANEOUS) (400 MG 1X/28 DAYS SUBCUTANEOUS) (400 MG 1X/28 DAYS SUBCUTANEOUS)
     Route: 058
     Dates: start: 20091001
  3. CIMZIA [Suspect]
     Indication: CROHN'S DISEASE
     Dosage: (SUBCUTANEOUS) (400 MG 1X/28 DAYS SUBCUTANEOUS) (400 MG 1X/28 DAYS SUBCUTANEOUS)
     Route: 058
     Dates: start: 20100402, end: 20100101
  4. PENTASA [Concomitant]
  5. METHOTREXATE [Concomitant]
  6. IRON [Concomitant]

REACTIONS (8)
  - ANAL SPHINCTER ATONY [None]
  - MALAISE [None]
  - CONDITION AGGRAVATED [None]
  - ABDOMINAL ADHESIONS [None]
  - SPLENECTOMY [None]
  - COLECTOMY [None]
  - HAEMOGLOBIN DECREASED [None]
  - CROHN'S DISEASE [None]
